FAERS Safety Report 9636904 (Version 1)
Quarter: 2013Q4

REPORT INFORMATION
  Report Type: Spontaneous
  Country: US (occurrence: US)
  Receive Date: 20131022
  Receipt Date: 20131022
  Transmission Date: 20140711
  Serious: No
  Sender: FDA-Public Use
  Company Number: US-BIOGENIDEC-2013BI096610

PATIENT
  Age: 25 Year
  Sex: Male

DRUGS (1)
  1. AVONEX [Suspect]
     Indication: MULTIPLE SCLEROSIS
     Route: 030
     Dates: start: 20130413

REACTIONS (10)
  - Ear discomfort [Not Recovered/Not Resolved]
  - Hiccups [Recovered/Resolved]
  - Back pain [Recovered/Resolved]
  - Ageusia [Recovered/Resolved]
  - Dysarthria [Recovered/Resolved]
  - Epistaxis [Recovered/Resolved]
  - Abnormal sensation in eye [Recovered/Resolved]
  - Dyspepsia [Recovered/Resolved]
  - Chest pain [Recovered/Resolved]
  - Headache [Recovered/Resolved]
